FAERS Safety Report 23233422 (Version 2)
Quarter: 2023Q4

REPORT INFORMATION
  Report Type: Report from Study
  Country: CN (occurrence: None)
  Receive Date: 20231128
  Receipt Date: 20231205
  Transmission Date: 20240109
  Serious: Yes (Hospitalization)
  Sender: FDA-Public Use
  Company Number: CN-ROCHE-3450862

PATIENT
  Age: 49 Year
  Sex: Female
  Weight: 53.5 kg

DRUGS (3)
  1. ADO-TRASTUZUMAB EMTANSINE [Suspect]
     Active Substance: ADO-TRASTUZUMAB EMTANSINE
     Indication: Breast cancer metastatic
     Dosage: THE PATIENT RECEIVED THE LAST DOSE OF ADO-TRASTUZUMAB EMTANSINE PRIOR TO EVENT ONSET DATE ON 09-NOV-
     Route: 042
     Dates: start: 20230728
  2. TUCATINIB [Suspect]
     Active Substance: TUCATINIB
     Indication: Breast cancer metastatic
     Dosage: ON A 21-DAY CYCLE AND COMPLETED CYCLE (C) 5, DAY (D) 8 OF STUDY TREATMENT. THE PATIENT RECEIVED THE
     Route: 048
     Dates: start: 20230728
  3. PHOSPHOLIPID [Concomitant]
     Active Substance: PHOSPHOLIPID

REACTIONS (2)
  - Platelet count decreased [Recovered/Resolved]
  - Tachycardia [Not Recovered/Not Resolved]

NARRATIVE: CASE EVENT DATE: 20231028
